FAERS Safety Report 6334713-1 (Version None)
Quarter: 2009Q3

REPORT INFORMATION
  Report Type: 
  Country: None (occurrence: None)
  Receive Date: 20090831
  Receipt Date: 20090819
  Transmission Date: 20100115
  Serious: Yes (Hospitalization)
  Sender: FDA-Public Use
  Company Number: US-ELI_LILLY_AND_COMPANY-US200908004392

PATIENT
  Sex: Male

DRUGS (3)
  1. CIALIS [Suspect]
     Dosage: 10 MG, UNKNOWN
     Route: 065
     Dates: start: 20080301
  2. CIALIS [Suspect]
     Dosage: 20 MG, UNKNOWN
     Route: 065
  3. TADALAFIL [Suspect]
     Dosage: 20 MG, UNKNOWN
     Route: 065

REACTIONS (4)
  - DRUG INEFFECTIVE [None]
  - INTENTIONAL DRUG MISUSE [None]
  - SPINAL FUSION SURGERY [None]
  - THERAPEUTIC RESPONSE DECREASED [None]
